FAERS Safety Report 7588171-X (Version None)
Quarter: 2011Q3

REPORT INFORMATION
  Report Type: 
  Country: None (occurrence: None)
  Receive Date: 20110705
  Receipt Date: 20110622
  Transmission Date: 20111222
  Serious: Yes (Hospitalization, Other)
  Sender: FDA-Public Use
  Company Number: US-BAYER-201013930NA

PATIENT
  Age: 19 Year
  Sex: Female
  Weight: 63.636 kg

DRUGS (10)
  1. YAZ [Suspect]
     Indication: PRODUCT USED FOR UNKNOWN INDICATION
     Route: 048
     Dates: start: 20080101, end: 20100101
  2. DROSPIRENONE AND ETHINYL ESTRADIOL [Suspect]
     Route: 048
  3. PEPCID [Concomitant]
     Route: 048
     Dates: start: 20080206
  4. MORPHINE [Concomitant]
  5. PENICILLIN [Concomitant]
     Indication: PRODUCT USED FOR UNKNOWN INDICATION
  6. PEPCID [Concomitant]
     Indication: ABDOMINAL PAIN
     Dates: start: 20071207
  7. PERCOCET [Concomitant]
     Indication: PAIN
     Dates: start: 20080227
  8. YASMIN [Suspect]
     Indication: PRODUCT USED FOR UNKNOWN INDICATION
     Route: 048
  9. LORTAB [Concomitant]
  10. MARIJUANA [Concomitant]
     Indication: PRODUCT USED FOR UNKNOWN INDICATION

REACTIONS (6)
  - CHOLECYSTITIS ACUTE [None]
  - CHEST PAIN [None]
  - ABDOMINAL PAIN [None]
  - NAUSEA [None]
  - CHOLELITHIASIS [None]
  - CHOLANGITIS [None]
